FAERS Safety Report 7340706-8 (Version None)
Quarter: 2011Q1

REPORT INFORMATION
  Report Type: 
  Country: None (occurrence: None)
  Receive Date: 20110309
  Receipt Date: 20110301
  Transmission Date: 20110831
  Serious: Yes (Hospitalization)
  Sender: FDA-Public Use
  Company Number: GB-PFIZER INC-GB-WYE-G06309010

PATIENT
  Age: 76 Year
  Sex: Female

DRUGS (11)
  1. SLOW-K [Suspect]
     Indication: HYPOKALAEMIA
     Dosage: 1 DF, 1X/DAY
     Route: 048
  2. VITAMIN B [Concomitant]
     Route: 065
  3. NICOTINAMIDE [Concomitant]
     Route: 065
  4. THEOPHYLLINE [Concomitant]
     Route: 065
  5. CIMETIDINE [Concomitant]
     Route: 065
  6. LOPERAMIDE [Concomitant]
     Route: 065
  7. PERINDOPRIL [Concomitant]
     Route: 065
  8. IBUPROFEN [Suspect]
     Indication: PAIN
     Dosage: 200 MG, 1X/DAY
     Route: 048
  9. FOLIC ACID [Concomitant]
     Route: 065
  10. OXYBUTYNIN [Concomitant]
     Route: 065
  11. AMILORIDE HYDROCHLORIDE AND HYDROCHLOROTHIAZIDE [Concomitant]
     Route: 065

REACTIONS (8)
  - ATRIAL FIBRILLATION [None]
  - DYSPEPSIA [None]
  - VOMITING [None]
  - MELAENA [None]
  - ABDOMINAL PAIN [None]
  - UPPER GASTROINTESTINAL HAEMORRHAGE [None]
  - HYPOTENSION [None]
  - DIARRHOEA [None]
